FAERS Safety Report 7542851-0 (Version None)
Quarter: 2011Q2

REPORT INFORMATION
  Report Type: 
  Country: None (occurrence: None)
  Receive Date: 20110613
  Receipt Date: 20110603
  Transmission Date: 20111010
  Serious: Yes (Death, Life-Threatening, Hospitalization, Other)
  Sender: FDA-Public Use
  Company Number: DE-PFIZER INC-2011095053

PATIENT
  Age: 76 Year
  Sex: Female

DRUGS (17)
  1. AMIODARONE HYDROCHLORIDE [Suspect]
     Indication: ATRIAL FIBRILLATION
     Dosage: 200 MG, 1X/DAY
     Route: 048
     Dates: start: 20101001, end: 20110401
  2. MARCUMAR [Concomitant]
     Indication: ATRIAL FIBRILLATION
     Dosage: UNK
     Dates: start: 20101001
  3. HEPARIN [Concomitant]
     Dosage: UNK
     Dates: start: 20110427, end: 20110504
  4. HUMAN-PPSB [Concomitant]
     Dosage: UNK
     Dates: start: 20110401
  5. DIGOXIN [Concomitant]
     Dosage: UNK
     Dates: start: 20110401
  6. TAZOBACTAM [Concomitant]
     Dosage: UNK
     Dates: start: 20110401
  7. AMIODARONE HYDROCHLORIDE [Suspect]
     Indication: PROPHYLAXIS
  8. MARCUMAR [Concomitant]
     Indication: ATRIAL FLUTTER
  9. NOREPINEPHRINE BITARTRATE [Concomitant]
     Dosage: UNK
     Dates: start: 20110401
  10. FUROSEMIDE [Concomitant]
     Dosage: UNK
     Dates: start: 20110401
  11. METOPROLOL [Concomitant]
     Dosage: UNK
     Dates: start: 20110401
  12. AMIODARONE HYDROCHLORIDE [Suspect]
     Indication: ATRIAL FLUTTER
  13. CLARITHROMYCIN [Concomitant]
     Dosage: UNK
     Dates: start: 20110401
  14. MOXIFLOXACIN [Concomitant]
     Dosage: UNK
     Dates: start: 20110401
  15. ACICLOVIR [Concomitant]
     Dosage: UNK
     Dates: start: 20110401
  16. PIPERACILLIN [Concomitant]
     Dosage: UNK
     Dates: start: 20110401
  17. MEROPENEM [Concomitant]
     Dosage: UNK
     Dates: start: 20110401

REACTIONS (7)
  - MULTI-ORGAN FAILURE [None]
  - RENAL FAILURE [None]
  - HERPES VIRUS INFECTION [None]
  - PNEUMONITIS [None]
  - ALVEOLITIS [None]
  - SEPTIC SHOCK [None]
  - PNEUMONIA PRIMARY ATYPICAL [None]
